FAERS Safety Report 6038113-3 (Version None)
Quarter: 2009Q1

REPORT INFORMATION
  Report Type: 
  Country: None (occurrence: None)
  Receive Date: 20090112
  Receipt Date: 20090112
  Transmission Date: 20090719
  Serious: Yes (Other)
  Sender: FDA-Public Use
  Company Number: None

PATIENT

DRUGS (1)
  1. ORTHO NOVUM 0.5/50 21 TAB [Suspect]
     Indication: CONTRACEPTION
     Dosage: ONCE PO DAILY X 21 DAYS
     Dates: start: 20061001, end: 20071001

REACTIONS (3)
  - MOOD ALTERED [None]
  - PREMENSTRUAL SYNDROME [None]
  - PRODUCT QUALITY ISSUE [None]
